FAERS Safety Report 10510047 (Version 2)
Quarter: 2014Q4

REPORT INFORMATION
  Report Type: Report from Study
  Country: BR (occurrence: BR)
  Receive Date: 20141010
  Receipt Date: 20141010
  Transmission Date: 20150528
  Serious: Yes (Hospitalization)
  Sender: FDA-Public Use
  Company Number: BR-ROCHE-1298546

PATIENT
  Sex: Female
  Weight: 52 kg

DRUGS (4)
  1. DIAMICRON [Concomitant]
     Active Substance: GLICLAZIDE
  2. TRIMOX [Concomitant]
     Active Substance: AMOXICILLIN
  3. DEFLAZACORT [Concomitant]
     Active Substance: DEFLAZACORT
  4. ACTEMRA [Suspect]
     Active Substance: TOCILIZUMAB
     Indication: RHEUMATOID ARTHRITIS
     Dosage: LATEST INFUSION ON 01/DEC/2013
     Route: 065
     Dates: start: 20131028

REACTIONS (4)
  - Blister [Unknown]
  - Headache [Not Recovered/Not Resolved]
  - Nausea [Not Recovered/Not Resolved]
  - Uterine injury [Unknown]
